FAERS Safety Report 5915159-4 (Version None)
Quarter: 2008Q3

REPORT INFORMATION
  Report Type: 
  Country: None (occurrence: None)
  Receive Date: 20080909
  Receipt Date: 20080108
  Transmission Date: 20090109
  Serious: Yes (Hospitalization)
  Sender: FDA-Public Use
  Company Number: 163-20785-08010497 (0)

PATIENT
  Age: 60 Year
  Sex: Female
  Weight: 80.4 kg

DRUGS (26)
  1. THALOMID [Suspect]
     Indication: MULTIPLE MYELOMA
     Dosage: 100 MG, EVERY NIGHT, ORAL ; 200 MG, ORAL
     Route: 048
     Dates: end: 20071228
  2. THALOMID [Suspect]
     Indication: MULTIPLE MYELOMA
     Dosage: 100 MG, EVERY NIGHT, ORAL ; 200 MG, ORAL
     Route: 048
     Dates: start: 20050806
  3. DEXAMETHASONE [Suspect]
     Indication: MULTIPLE MYELOMA
     Dosage: 20 MG, DAYS 1-4 EVERY 28 DAYS, ORAL ; 40 MG, ORAL
     Dates: end: 20071214
  4. DEXAMETHASONE [Suspect]
     Indication: MULTIPLE MYELOMA
     Dosage: 20 MG, DAYS 1-4 EVERY 28 DAYS, ORAL ; 40 MG, ORAL
     Dates: start: 20050806
  5. VELCADE [Suspect]
     Indication: MULTIPLE MYELOMA
     Dosage: 1 MG/M2
     Dates: start: 20050803, end: 20070928
  6. MELPHALAN (MELPHALAN) [Suspect]
     Indication: MULTIPLE MYELOMA
     Dosage: 200 MG/M2
     Dates: start: 20051101, end: 20051227
  7. CISPLATIN [Suspect]
     Indication: MULTIPLE MYELOMA
     Dosage: 7.5 MG/M2 ; 10 MG/M2
     Dates: end: 20060707
  8. CISPLATIN [Suspect]
     Indication: MULTIPLE MYELOMA
     Dosage: 7.5 MG/M2 ; 10 MG/M2
     Dates: start: 20050806
  9. ADRIAMYCIN PFS [Suspect]
     Indication: MULTIPLE MYELOMA
     Dosage: 7.5 MG/M2 ; 10 MG/M2
     Dates: end: 20060707
  10. ADRIAMYCIN PFS [Suspect]
     Indication: MULTIPLE MYELOMA
     Dosage: 7.5 MG/M2 ; 10 MG/M2
     Dates: start: 20050806
  11. CYCLOPHOSPHAMIDE [Suspect]
     Indication: MULTIPLE MYELOMA
     Dosage: 300 MG/M2 ; 400 MG/M2
     Dates: end: 20060707
  12. CYCLOPHOSPHAMIDE [Suspect]
     Indication: MULTIPLE MYELOMA
     Dosage: 300 MG/M2 ; 400 MG/M2
     Dates: start: 20050806
  13. ETOPOSIDE [Suspect]
     Indication: MULTIPLE MYELOMA
     Dosage: 30 MG/M2 ; 40 MG/M2
     Dates: end: 20060707
  14. ETOPOSIDE [Suspect]
     Indication: MULTIPLE MYELOMA
     Dosage: 30 MG/M2 ; 40 MG/M2
     Dates: start: 20050806
  15. SYNTHROID (LEVOTHYROXINE SODIUM) (TABLETS) [Concomitant]
  16. ACYCLOVIR (ACICLOVIR) (TABLETS) [Concomitant]
  17. VITAMIN C (ASCORBIC ACID) (TABLETS) [Concomitant]
  18. MULTIVITAMINS (MULTIVITAMINS) (TABLETS) [Concomitant]
  19. LEVAQUIN [Concomitant]
  20. FOLIC ACID (FOLIC ACID) (TABLETS) [Concomitant]
  21. ACIPHEX [Concomitant]
  22. HYDROCODONE W/ACETAMINOPHEN (VICODIN) (TABLETS) [Concomitant]
  23. FLUCONAZOLE (FLUCONAZOLE) (TABLETS) [Concomitant]
  24. SENNA-GEN (SENNA) (TABLETS) [Concomitant]
  25. DOCUSATE SODIUM (DOCUSATE SODIUM) (100 MILLIGRAM, CAPSULES) [Concomitant]
  26. BENICAR [Concomitant]

REACTIONS (1)
  - PNEUMONIA [None]
